FAERS Safety Report 17360719 (Version 4)
Quarter: 2020Q1

REPORT INFORMATION
  Report Type: Spontaneous
  Country: JP (occurrence: JP)
  Receive Date: 20200203
  Receipt Date: 20200330
  Transmission Date: 20200409
  Serious: Yes (Life-Threatening, Hospitalization)
  Sender: FDA-Public Use
  Company Number: JP-ASTRAZENECA-2020SE13889

PATIENT
  Age: 16464 Day
  Sex: Female
  Weight: 42 kg

DRUGS (6)
  1. METFORMIN HYDROCHLORIDE. [Suspect]
     Active Substance: METFORMIN HYDROCHLORIDE
     Indication: TYPE 1 DIABETES MELLITUS
     Route: 048
     Dates: start: 20170506, end: 20200113
  2. INSULIN GLARGINE [Suspect]
     Active Substance: INSULIN GLARGINE
     Indication: TYPE 1 DIABETES MELLITUS
     Dosage: 100 IN THE EVENING
     Route: 058
     Dates: start: 201610, end: 20200113
  3. FORXIGA [Suspect]
     Active Substance: DAPAGLIFLOZIN
     Indication: TYPE 1 DIABETES MELLITUS
     Route: 048
     Dates: start: 20170916, end: 20200113
  4. TRESIBA [Suspect]
     Active Substance: INSULIN DEGLUDEC
     Indication: TYPE 2 DIABETES MELLITUS
     Dosage: 10 UNITS IN THE EVENING
     Route: 065
     Dates: start: 20200121
  5. HUMALOG [Suspect]
     Active Substance: INSULIN LISPRO
     Indication: TYPE 1 DIABETES MELLITUS
     Dosage: 60 IN THE MORNING, 30 IN THE AFTERNOON, 100 IN THE EVENING
     Route: 058
     Dates: start: 201610, end: 20200113
  6. INAVIR (LANINAMIVIR OCTANOATE MONOHYDRATE) [Suspect]
     Active Substance: LANINAMIVIR OCTANOATE MONOHYDRATE
     Indication: INFLUENZA
     Dosage: 10 UNITS IN THE EVENING
     Route: 065
     Dates: start: 20200114

REACTIONS (2)
  - Diabetic ketoacidosis [Recovered/Resolved]
  - Influenza [Recovered/Resolved]

NARRATIVE: CASE EVENT DATE: 20200113
